FAERS Safety Report 14781741 (Version 1)
Quarter: 2018Q2

REPORT INFORMATION
  Report Type: Spontaneous
  Country: GB (occurrence: GB)
  Receive Date: 20180420
  Receipt Date: 20180420
  Transmission Date: 20180711
  Serious: Yes (Other)
  Sender: FDA-Public Use
  Company Number: GB-ROCHE-2109980

PATIENT
  Sex: Male

DRUGS (2)
  1. XOLAIR [Suspect]
     Active Substance: OMALIZUMAB
     Indication: PRODUCT USED FOR UNKNOWN INDICATION
     Dosage: RECENT DOSE
     Route: 065
     Dates: start: 20180212
  2. XOLAIR [Suspect]
     Active Substance: OMALIZUMAB
     Dosage: FIRST DOSE
     Route: 065
     Dates: start: 20170306

REACTIONS (3)
  - Lacrimation increased [Unknown]
  - Anaphylactic reaction [Recovered/Resolved with Sequelae]
  - Rash [Unknown]

NARRATIVE: CASE EVENT DATE: 20180220
